FAERS Safety Report 20573026 (Version 1)
Quarter: 2022Q1

REPORT INFORMATION
  Report Type: Spontaneous
  Country: BR (occurrence: BR)
  Receive Date: 20220309
  Receipt Date: 20220309
  Transmission Date: 20220424
  Serious: Yes (Hospitalization)
  Sender: FDA-Public Use
  Company Number: BR-ELI_LILLY_AND_COMPANY-BR202110011747

PATIENT
  Sex: Female

DRUGS (6)
  1. FORTEO [Suspect]
     Active Substance: TERIPARATIDE
     Indication: Osteoporosis
     Dosage: 20 UG, DAILY
     Route: 058
     Dates: start: 20200828
  2. FORTEO [Suspect]
     Active Substance: TERIPARATIDE
     Dosage: 20 UG, DAILY
     Route: 058
  3. CALCIUM [Concomitant]
     Active Substance: CALCIUM
     Indication: Product used for unknown indication
     Dosage: UNK, UNKNOWN
     Route: 065
  4. CALCIUM GLUCONATE [Concomitant]
     Active Substance: CALCIUM GLUCONATE
     Indication: Product used for unknown indication
     Dosage: UNK, UNKNOWN
     Route: 065
  5. DOSS [COLECALCIFEROL] [Concomitant]
     Indication: Product used for unknown indication
     Dosage: UNK, UNKNOWN
     Route: 065
  6. IRON POLYMALTOSE [Concomitant]
     Active Substance: IRON POLYMALTOSE
     Indication: Product used for unknown indication
     Dosage: UNK, WEEKLY (1/W)
     Route: 042

REACTIONS (9)
  - Osteoarthritis [Unknown]
  - Diarrhoea [Not Recovered/Not Resolved]
  - Anaemia [Unknown]
  - Malaise [Not Recovered/Not Resolved]
  - Dysgeusia [Not Recovered/Not Resolved]
  - Depression [Not Recovered/Not Resolved]
  - Poor quality sleep [Not Recovered/Not Resolved]
  - Retching [Not Recovered/Not Resolved]
  - Nausea [Unknown]
